FAERS Safety Report 11182824 (Version 5)
Quarter: 2015Q4

REPORT INFORMATION
  Report Type: Other
  Country: US (occurrence: US)
  Receive Date: 20150611
  Receipt Date: 20151001
  Transmission Date: 20160304
  Serious: Yes (Hospitalization)
  Sender: FDA-Public Use
  Company Number: US-UNITED THERAPEUTICS-UNT-2015-006724

PATIENT
  Age: 75 Year
  Sex: Female
  Weight: 81.63 kg

DRUGS (5)
  1. TYVASO [Suspect]
     Active Substance: TREPROSTINIL
     Indication: PULMONARY ARTERIAL HYPERTENSION
     Dosage: 18-54 ?G, QID
     Dates: start: 20150223
  2. OPSUMIT [Concomitant]
     Active Substance: MACITENTAN
     Indication: PRODUCT USED FOR UNKNOWN INDICATION
  3. TYVASO [Suspect]
     Active Substance: TREPROSTINIL
     Dosage: 18-54 ?G, QID
  4. TYVASO [Suspect]
     Active Substance: TREPROSTINIL
     Dosage: 18-54 ?G, QID
  5. ADCIRCA [Concomitant]
     Active Substance: TADALAFIL
     Indication: PRODUCT USED FOR UNKNOWN INDICATION

REACTIONS (12)
  - Epistaxis [Unknown]
  - Oxygen saturation decreased [Unknown]
  - Ear infection [Unknown]
  - Atrial fibrillation [Unknown]
  - Nausea [Unknown]
  - Anaemia [Unknown]
  - Haematemesis [Unknown]
  - Throat irritation [Unknown]
  - Syncope [Unknown]
  - Drug dose omission [Unknown]
  - Abdominal pain upper [Unknown]
  - Fluid retention [Unknown]

NARRATIVE: CASE EVENT DATE: 2015
